FAERS Safety Report 19107046 (Version 2)
Quarter: 2021Q2

REPORT INFORMATION
  Report Type: Spontaneous
  Country: US (occurrence: US)
  Receive Date: 20210408
  Receipt Date: 20210409
  Transmission Date: 20210717
  Serious: Yes (Other)
  Sender: FDA-Public Use
  Company Number: US-ROCHE-2801479

PATIENT
  Sex: Male
  Weight: 74.91 kg

DRUGS (10)
  1. FLEXERIL [Concomitant]
     Active Substance: CYCLOBENZAPRINE HYDROCHLORIDE
     Indication: MUSCLE SPASMS
     Dosage: ONE IN MORNING, 1/2 PILL @ NOON, 1 PILL @NIGHT
     Route: 048
     Dates: start: 2020
  2. TYLENOL [Concomitant]
     Active Substance: ACETAMINOPHEN
     Indication: PREMEDICATION
  3. FLUOXETINE [Concomitant]
     Active Substance: FLUOXETINE HYDROCHLORIDE
     Indication: DEPRESSION
     Route: 048
  4. BENADRYL [Concomitant]
     Active Substance: DIPHENHYDRAMINE HYDROCHLORIDE
     Indication: PREMEDICATION
  5. ZYRTEC (UNITED STATES) [Concomitant]
     Indication: HYPERSENSITIVITY
  6. OCREVUS [Suspect]
     Active Substance: OCRELIZUMAB
     Indication: RELAPSING-REMITTING MULTIPLE SCLEROSIS
     Route: 042
     Dates: start: 202001
  7. FLUOXETINE [Concomitant]
     Active Substance: FLUOXETINE HYDROCHLORIDE
     Indication: MOOD ALTERED
  8. CYCLOSPORINE. [Concomitant]
     Active Substance: CYCLOSPORINE
     Indication: LIVER TRANSPLANT
     Dosage: GENGRAFT BRAND
     Route: 048
  9. CYCLOSPORINE. [Concomitant]
     Active Substance: CYCLOSPORINE
     Dosage: DOSE INCREASE FOR MS (BEFORE OCREVUS)
  10. CYCLOSPORINE. [Concomitant]
     Active Substance: CYCLOSPORINE
     Dosage: DOSE DECREASED AGAIN (WHEN STARTING OCREVUS)

REACTIONS (9)
  - Multiple sclerosis relapse [Unknown]
  - Ear pruritus [Not Recovered/Not Resolved]
  - Ear pruritus [Recovered/Resolved]
  - Nerve compression [Unknown]
  - Otorrhoea [Recovered/Resolved]
  - Anxiety [Unknown]
  - Skin injury [Not Recovered/Not Resolved]
  - Ear disorder [Unknown]
  - Ear infection fungal [Not Recovered/Not Resolved]

NARRATIVE: CASE EVENT DATE: 2020
